FAERS Safety Report 24665009 (Version 1)
Quarter: 2024Q4

REPORT INFORMATION
  Report Type: Spontaneous
  Country: CA (occurrence: CA)
  Receive Date: 20241126
  Receipt Date: 20241126
  Transmission Date: 20250115
  Serious: Yes (Death)
  Sender: PFIZER
  Company Number: CA-PFIZER INC-2019084764

PATIENT
  Age: 70 Year
  Sex: Female

DRUGS (1)
  1. IBRANCE [Suspect]
     Active Substance: PALBOCICLIB
     Indication: Chemotherapy
     Dosage: 125 MG, 21/28 DAYS
     Dates: start: 20181105

REACTIONS (4)
  - Death [Fatal]
  - Poor quality product administered [Unknown]
  - Product physical issue [Unknown]
  - Product complaint [Unknown]

NARRATIVE: CASE EVENT DATE: 20190220
